FAERS Safety Report 4698543-9 (Version None)
Quarter: 2005Q2

REPORT INFORMATION
  Report Type: 
  Country: None (occurrence: None)
  Receive Date: 20050622
  Receipt Date: 20050510
  Transmission Date: 20051028
  Serious: Yes (Hospitalization, Other)
  Sender: FDA-Public Use
  Company Number: 2004116903

PATIENT
  Age: 78 Year
  Sex: Female

DRUGS (7)
  1. CELEBREX [Suspect]
     Indication: PAIN
     Dosage: 200 MG (200 MG, 1 IN 1 D)
     Dates: start: 20020101
  2. ASPIRIN [Concomitant]
  3. LIPITOR [Concomitant]
  4. PEPCID [Concomitant]
  5. TOPROL-XL [Concomitant]
  6. MAVIK [Concomitant]
  7. HYDROCHLOROTHIAZIDE [Concomitant]

REACTIONS (3)
  - BRADYCARDIA [None]
  - OEDEMA PERIPHERAL [None]
  - SICK SINUS SYNDROME [None]
